FAERS Safety Report 11738683 (Version 1)
Quarter: 2015Q4

REPORT INFORMATION
  Report Type: Report from Study
  Country: US (occurrence: US)
  Receive Date: 20151113
  Receipt Date: 20151113
  Transmission Date: 20160304
  Serious: Yes (Hospitalization, Other)
  Sender: FDA-Public Use
  Company Number: US-BAYER-2015-446571

PATIENT
  Age: 80 Year
  Sex: Female
  Weight: 82.86 kg

DRUGS (5)
  1. ADCIRCA [Concomitant]
     Active Substance: TADALAFIL
     Dosage: UNK
     Dates: start: 2015
  2. ADCIRCA [Concomitant]
     Active Substance: TADALAFIL
     Dosage: UNK
     Dates: end: 2015
  3. ADEMPAS [Suspect]
     Active Substance: RIOCIGUAT
     Indication: PULMONARY ARTERIAL HYPERTENSION
     Dosage: UNK
     Dates: start: 20150817
  4. ADEMPAS [Suspect]
     Active Substance: RIOCIGUAT
     Indication: PULMONARY ARTERIAL HYPERTENSION
     Dosage: 1 MG, TID
     Route: 048
     Dates: end: 2015
  5. OPSUMIT [Concomitant]
     Active Substance: MACITENTAN

REACTIONS (17)
  - Gastrointestinal tract irritation [Unknown]
  - Disorientation [Unknown]
  - Tremor [Unknown]
  - Dizziness [Unknown]
  - Blood pressure fluctuation [Unknown]
  - Faeces discoloured [Unknown]
  - Hypotension [Unknown]
  - Blood pressure decreased [Unknown]
  - Oedema peripheral [Unknown]
  - Blood pressure diastolic decreased [Unknown]
  - Abasia [Unknown]
  - Muscular weakness [Unknown]
  - Diarrhoea [Unknown]
  - Nasal congestion [Unknown]
  - Retching [Unknown]
  - Nausea [Unknown]
  - Balance disorder [Unknown]

NARRATIVE: CASE EVENT DATE: 20151012
